FAERS Safety Report 21370209 (Version 23)
Quarter: 2023Q4

REPORT INFORMATION
  Report Type: Report from Study
  Country: BR (occurrence: None)
  Receive Date: 20220923
  Receipt Date: 20231201
  Transmission Date: 20240109
  Serious: Yes (Death, Hospitalization)
  Sender: FDA-Public Use
  Company Number: BR-ROCHE-3177675

PATIENT
  Age: 77 Year
  Sex: Female
  Weight: 38 kg

DRUGS (8)
  1. RITUXIMAB [Suspect]
     Active Substance: RITUXIMAB
     Indication: Non-Hodgkin^s lymphoma metastatic
     Dosage: DATE OF MOST RECENT DOSE 09/SEP/2022 AT 11:45 AM TO 1:10 PM, DOSE LAST STUDY DRUG ADMIN PRIOR SAE IS
     Route: 041
     Dates: start: 20220909
  2. LENALIDOMIDE [Suspect]
     Active Substance: LENALIDOMIDE
     Indication: Non-Hodgkin^s lymphoma metastatic
     Dosage: DATE OF MOST RECENT DOSE 12/SEP/2022 (20 MG); START DATE OF MOST RECENT DOSE OF STUDY DRUG PRIOR TO
     Route: 048
     Dates: start: 20220909
  3. HUMAN RED BLOOD CELL [Concomitant]
     Active Substance: HUMAN RED BLOOD CELL
     Dosage: DOSE 1U
     Dates: start: 20220912
  4. NORFLOXACIN [Concomitant]
     Active Substance: NORFLOXACIN
     Indication: Urinary tract infection
     Route: 048
     Dates: start: 20220928, end: 20221003
  5. FLUCONAZOLE [Concomitant]
     Active Substance: FLUCONAZOLE
     Indication: Urinary tract infection
     Route: 048
     Dates: start: 20220928, end: 20221003
  6. DECADRON [Concomitant]
     Active Substance: DEXAMETHASONE
     Route: 042
     Dates: start: 20220908, end: 20220908
  7. ACETAMINOPHEN [Concomitant]
     Active Substance: ACETAMINOPHEN
     Route: 048
     Dates: start: 20220908, end: 20220908
  8. DIPHENHYDRAMINE [Concomitant]
     Active Substance: DIPHENHYDRAMINE
     Route: 042
     Dates: start: 20220908, end: 20220908

REACTIONS (8)
  - Platelet count decreased [Recovered/Resolved]
  - Cytokine release syndrome [Recovered/Resolved]
  - Infection [Recovered/Resolved]
  - Anaemia [Recovered/Resolved]
  - Acute kidney injury [Recovered/Resolved]
  - Infusion related reaction [Recovered/Resolved]
  - Urosepsis [Fatal]
  - Hypercalcaemia [Recovered/Resolved]

NARRATIVE: CASE EVENT DATE: 20220909
